FAERS Safety Report 5448544-8 (Version None)
Quarter: 2007Q3

REPORT INFORMATION
  Report Type: 
  Country: None (occurrence: None)
  Receive Date: 20070911
  Receipt Date: 20070831
  Transmission Date: 20080115
  Serious: Yes (Hospitalization)
  Sender: FDA-Public Use
  Company Number: US-ELI_LILLY_AND_COMPANY-US200707001517

PATIENT
  Age: 88 Year
  Sex: Female

DRUGS (4)
  1. FORTEO [Suspect]
     Indication: OSTEOPOROSIS
     Dosage: 20 UG, DAILY (1/D)
     Dates: start: 20070601, end: 20070701
  2. ALEVE [Concomitant]
     Indication: SCIATICA
     Dosage: 2 D/F, 2/D
     Dates: start: 20070601
  3. LOTREL [Concomitant]
     Indication: CARDIAC DISORDER
  4. OSCAL [Concomitant]

REACTIONS (3)
  - ANAEMIA [None]
  - FEELING HOT [None]
  - GASTROINTESTINAL HAEMORRHAGE [None]
